FAERS Safety Report 14441032 (Version 1)
Quarter: 2018Q1

REPORT INFORMATION
  Report Type: Report from Study
  Country: US (occurrence: US)
  Receive Date: 20180125
  Receipt Date: 20180125
  Transmission Date: 20180509
  Serious: No
  Sender: FDA-Public Use
  Company Number: US-AMGEN-USASL2017179700

PATIENT
  Age: 67 Year
  Sex: Female

DRUGS (3)
  1. REPATHA [Suspect]
     Active Substance: EVOLOCUMAB
     Indication: BLOOD CHOLESTEROL INCREASED
     Dosage: UNK, Q2WK
     Route: 058
     Dates: start: 201606
  2. REPATHA [Suspect]
     Active Substance: EVOLOCUMAB
     Dosage: 420 MG, QMO
     Route: 058
     Dates: end: 2017
  3. REPATHA [Suspect]
     Active Substance: EVOLOCUMAB
     Dosage: 140 MG/ML, Q2WK
     Route: 058
     Dates: start: 201711

REACTIONS (6)
  - Musculoskeletal pain [Recovered/Resolved]
  - Injection site swelling [Recovered/Resolved]
  - Arthralgia [Recovered/Resolved]
  - Influenza like illness [Recovered/Resolved]
  - Nausea [Recovered/Resolved]
  - Nasal septal operation [Unknown]

NARRATIVE: CASE EVENT DATE: 2017
